FAERS Safety Report 7027597-X (Version None)
Quarter: 2010Q4

REPORT INFORMATION
  Report Type: 
  Country: None (occurrence: None)
  Receive Date: 20101004
  Receipt Date: 20100922
  Transmission Date: 20110411
  Serious: Yes (Hospitalization)
  Sender: FDA-Public Use
  Company Number: US-US-EMD SERONO, INC.-231178J09USA

PATIENT
  Sex: Female
  Weight: 69 kg

DRUGS (6)
  1. REBIF [Suspect]
     Indication: MULTIPLE SCLEROSIS
     Route: 058
     Dates: start: 20041015
  2. PAXIL [Concomitant]
  3. ESTRACE [Concomitant]
  4. TEGRETOL [Concomitant]
  5. ALPRAZOLAM [Concomitant]
  6. FOLIC ACID [Concomitant]

REACTIONS (3)
  - HEADACHE [None]
  - INJECTION SITE REACTION [None]
  - OVARIAN CYST [None]
